FAERS Safety Report 6341782-1 (Version None)
Quarter: 2009Q3

REPORT INFORMATION
  Report Type: 
  Country: None (occurrence: None)
  Receive Date: 20090901
  Receipt Date: 20090901
  Transmission Date: 20100115
  Serious: Yes (Hospitalization)
  Sender: FDA-Public Use
  Company Number: None

PATIENT
  Age: 45 Year
  Sex: Male
  Weight: 99.7913 kg

DRUGS (2)
  1. PAROXETINE HCL [Suspect]
     Indication: ANXIETY
     Dosage: 10 OR 20 MG DAILY PO 40-41 DAYS
     Route: 048
     Dates: start: 20090713, end: 20090831
  2. PAROXETINE HCL [Suspect]
     Indication: PANIC ATTACK
     Dosage: 10 OR 20 MG DAILY PO 40-41 DAYS
     Route: 048
     Dates: start: 20090713, end: 20090831

REACTIONS (4)
  - ANXIETY [None]
  - CONDITION AGGRAVATED [None]
  - PANIC ATTACK [None]
  - PRODUCT SUBSTITUTION ISSUE [None]
